FAERS Safety Report 18777041 (Version 1)
Quarter: 2021Q1

REPORT INFORMATION
  Report Type: Spontaneous
  Country: US (occurrence: US)
  Receive Date: 20210123
  Receipt Date: 20210123
  Transmission Date: 20210419
  Serious: No
  Sender: FDA-Public Use
  Company Number: US-CELGENEUS-USA-20210104552

PATIENT
  Sex: Female
  Weight: 54.48 kg

DRUGS (27)
  1. ACYCLOVIR. [Concomitant]
     Active Substance: ACYCLOVIR
     Indication: CHEMOTHERAPY
  2. REVLIMID [Suspect]
     Active Substance: LENALIDOMIDE
     Indication: PLASMA CELL MYELOMA
     Dosage: 20 MILLIGRAM
     Route: 048
     Dates: start: 201907
  3. VELCADE [Concomitant]
     Active Substance: BORTEZOMIB
     Indication: ANTIVIRAL TREATMENT
     Route: 065
  4. VELCADE [Concomitant]
     Active Substance: BORTEZOMIB
     Indication: CHEMOTHERAPY
  5. VITAMIN C [Concomitant]
     Active Substance: ASCORBIC ACID
     Indication: VITAMIN SUPPLEMENTATION
     Route: 065
  6. IRON [Concomitant]
     Active Substance: IRON
     Indication: VITAMIN SUPPLEMENTATION
     Route: 065
  7. ASPIRIN. [Concomitant]
     Active Substance: ASPIRIN
     Indication: ANTIVIRAL TREATMENT
     Route: 065
  8. ASPIRIN. [Concomitant]
     Active Substance: ASPIRIN
     Indication: CHEMOTHERAPY
  9. VELCADE [Concomitant]
     Active Substance: BORTEZOMIB
     Indication: INFLAMMATION
  10. REVLIMID [Suspect]
     Active Substance: LENALIDOMIDE
     Dosage: 10 MILLIGRAM
     Route: 048
     Dates: start: 20201230
  11. ASPIRIN. [Concomitant]
     Active Substance: ASPIRIN
     Indication: CARDIAC DISORDER
  12. ASPIRIN. [Concomitant]
     Active Substance: ASPIRIN
     Indication: INFLAMMATION
  13. DEXAMETHASONE. [Concomitant]
     Active Substance: DEXAMETHASONE
     Indication: CHEMOTHERAPY
  14. REVLIMID [Suspect]
     Active Substance: LENALIDOMIDE
     Dosage: 15 MILLIGRAM
     Route: 048
     Dates: start: 201910
  15. CALCIUM 500+D [Concomitant]
     Active Substance: CALCIUM\VITAMIN D
     Indication: VITAMIN SUPPLEMENTATION
     Dosage: CALCIUM 500+D 500?200 MG
     Route: 065
  16. MULTIVITAMINS [Concomitant]
     Active Substance: VITAMINS
     Indication: VITAMIN SUPPLEMENTATION
     Route: 065
  17. BIOTIN [Concomitant]
     Active Substance: BIOTIN
     Indication: VITAMIN SUPPLEMENTATION
     Route: 065
  18. ACYCLOVIR. [Concomitant]
     Active Substance: ACYCLOVIR
     Indication: INFLAMMATION
  19. DEXAMETHASONE. [Concomitant]
     Active Substance: DEXAMETHASONE
     Indication: ANTIVIRAL TREATMENT
     Route: 065
  20. VELCADE [Concomitant]
     Active Substance: BORTEZOMIB
     Indication: CARDIAC DISORDER
  21. ZINC GLUCONATE [Concomitant]
     Active Substance: ZINC GLUCONATE
     Indication: VITAMIN SUPPLEMENTATION
     Route: 065
  22. ACYCLOVIR. [Concomitant]
     Active Substance: ACYCLOVIR
     Indication: ANTIVIRAL TREATMENT
     Route: 065
  23. VITAMIN B12 [Concomitant]
     Active Substance: CYANOCOBALAMIN
     Indication: VITAMIN SUPPLEMENTATION
     Route: 065
  24. ACYCLOVIR. [Concomitant]
     Active Substance: ACYCLOVIR
     Indication: CARDIAC DISORDER
  25. DEXAMETHASONE. [Concomitant]
     Active Substance: DEXAMETHASONE
     Indication: CARDIAC DISORDER
  26. FISH OIL [Concomitant]
     Active Substance: FISH OIL
     Indication: VITAMIN SUPPLEMENTATION
     Route: 065
  27. DEXAMETHASONE. [Concomitant]
     Active Substance: DEXAMETHASONE
     Indication: INFLAMMATION

REACTIONS (1)
  - Dizziness [Unknown]
